FAERS Safety Report 7882785-5 (Version None)
Quarter: 2011Q4

REPORT INFORMATION
  Report Type: 
  Country: None (occurrence: None)
  Receive Date: 20111101
  Receipt Date: 20110620
  Transmission Date: 20120403
  Serious: No
  Sender: FDA-Public Use
  Company Number: US-AMGEN-USASP2011031398

PATIENT
  Sex: Female

DRUGS (3)
  1. METHOTREXATE [Concomitant]
  2. ENBREL [Suspect]
     Indication: FIBROMYALGIA
  3. ENBREL [Suspect]
     Indication: RHEUMATOID ARTHRITIS
     Dosage: 50 MG, QWK
     Dates: start: 20110315

REACTIONS (2)
  - FATIGUE [None]
  - DRUG INEFFECTIVE [None]
